FAERS Safety Report 9391278 (Version 1)
Quarter: 2013Q3

REPORT INFORMATION
  Report Type: Spontaneous
  Country: US (occurrence: US)
  Receive Date: 20130709
  Receipt Date: 20130709
  Transmission Date: 20140515
  Serious: Yes (Hospitalization)
  Sender: FDA-Public Use
  Company Number: US-B.I. PHARMACEUTICALS,INC./RIDGEFIELD-2013-BI-19448BP

PATIENT
  Age: 79 Year
  Sex: Female

DRUGS (13)
  1. PRADAXA [Suspect]
     Indication: ATRIAL FIBRILLATION
     Dosage: 300 MG
     Route: 048
     Dates: start: 201301, end: 20130703
  2. VITAMIN C [Concomitant]
  3. ASA [Concomitant]
     Route: 048
  4. PRAVACHOL [Concomitant]
     Indication: BLOOD CHOLESTEROL INCREASED
  5. LASIX [Concomitant]
  6. PROVENTYL [Concomitant]
  7. MULTIVITES [Concomitant]
  8. CITRACAL [Concomitant]
  9. PRILOSEC [Concomitant]
     Indication: GASTROOESOPHAGEAL REFLUX DISEASE
     Dosage: FORMULATION: CAPLET
  10. IMDUR [Concomitant]
     Indication: CARDIAC FAILURE CONGESTIVE
  11. METFORMIN [Concomitant]
     Indication: DIABETES MELLITUS
  12. LISINOPRIL [Concomitant]
     Indication: HYPERTENSION
  13. AMLODIPINE [Concomitant]
     Indication: HYPERTENSION

REACTIONS (2)
  - Atrial thrombosis [Recovered/Resolved]
  - Cerebrovascular accident [Recovered/Resolved]
